FAERS Safety Report 13843609 (Version 1)
Quarter: 2017Q3

REPORT INFORMATION
  Report Type: Spontaneous
  Country: US (occurrence: US)
  Receive Date: 20170808
  Receipt Date: 20170808
  Transmission Date: 20171127
  Serious: No
  Sender: FDA-Public Use
  Company Number: None

PATIENT

DRUGS (2)
  1. LIDOCAINE 2% ORAL TOPICAL SOLUTION CUPS [Suspect]
     Active Substance: LIDOCAINE
  2. LACTULOSE SOLUTION 20G/30ML CUPS [Suspect]
     Active Substance: LACTULOSE

REACTIONS (1)
  - Product packaging confusion [None]
